FAERS Safety Report 4483749-4 (Version None)
Quarter: 2004Q4

REPORT INFORMATION
  Report Type: 
  Country: None (occurrence: None)
  Receive Date: 20041021
  Receipt Date: 20041011
  Transmission Date: 20050328
  Serious: Yes (Hospitalization)
  Sender: FDA-Public Use
  Company Number: 2004238380US

PATIENT
  Age: 75 Year
  Sex: Female
  Weight: 63.5 kg

DRUGS (7)
  1. DETROL LA [Suspect]
     Indication: HYPERTONIC BLADDER
     Dosage: 4 MG, QD, ORAL
     Route: 048
     Dates: start: 20031001
  2. SYNTHROID [Concomitant]
  3. TAMBOCOR [Concomitant]
  4. PLAVIX [Concomitant]
  5. PRILOSEC [Concomitant]
  6. ASPIRIN [Concomitant]
  7. FOSAMAX [Concomitant]

REACTIONS (2)
  - DRUG INEFFECTIVE [None]
  - NERVE COMPRESSION [None]
